FAERS Safety Report 25930845 (Version 1)
Quarter: 2025Q4

REPORT INFORMATION
  Report Type: Spontaneous
  Country: US (occurrence: US)
  Receive Date: 20251016
  Receipt Date: 20251016
  Transmission Date: 20260117
  Serious: No
  Sender: SANOFI AVENTIS
  Company Number: US-ASTELLAS-2025-AER-056415

PATIENT
  Age: 82 Year
  Sex: Male

DRUGS (3)
  1. FLOMAX [Suspect]
     Active Substance: TAMSULOSIN HYDROCHLORIDE
     Indication: Product used for unknown indication
     Dosage: UNK, BID, (INCRESED TO TWICE DAY)
     Route: 065
  2. GEMTESA [Concomitant]
     Active Substance: VIBEGRON
     Indication: Pollakiuria
     Dosage: UNK
     Route: 065
  3. ORGOVYX [Concomitant]
     Active Substance: RELUGOLIX
     Indication: Prostate cancer
     Dosage: 120 MG, QD, (ONGOING)
     Route: 065
     Dates: start: 20241231

REACTIONS (1)
  - Off label use [Unknown]
